FAERS Safety Report 10220348 (Version 1)
Quarter: 2014Q2

REPORT INFORMATION
  Report Type: Spontaneous
  Country: JP (occurrence: JP)
  Receive Date: 20140606
  Receipt Date: 20140606
  Transmission Date: 20141212
  Serious: Yes (Hospitalization)
  Sender: FDA-Public Use
  Company Number: JP-009507513-1406JPN000289

PATIENT
  Age: 75 Year
  Sex: 0

DRUGS (10)
  1. ESLAX INTRAVENOUS 25MG/2.5ML [Suspect]
     Indication: NEUROMUSCULAR BLOCKING THERAPY
     Dosage: 40 MG, ONCE
     Route: 042
     Dates: start: 20140507, end: 20140507
  2. ESLAX INTRAVENOUS 25MG/2.5ML [Suspect]
     Dosage: 40 MG, ONCE
     Route: 042
     Dates: start: 20140512, end: 20140512
  3. DILTIAZEM HYDROCHLORIDE [Concomitant]
     Indication: PROPHYLAXIS
     Dosage: DAILY DOSAGE UNKNOWN
     Route: 065
     Dates: start: 20140512
  4. ULTIVA [Concomitant]
     Indication: INDUCTION OF ANAESTHESIA
     Dosage: 0.1 MCG, UNK
     Route: 042
     Dates: start: 20140507
  5. ULTIVA [Concomitant]
     Dosage: 0.1 MCG, UNK
     Route: 042
     Dates: start: 20140512
  6. FENTANYL [Concomitant]
     Indication: INDUCTION OF ANAESTHESIA
     Dosage: 0.1 MCG, UNK
     Route: 042
     Dates: start: 20140507
  7. FENTANYL [Concomitant]
     Dosage: 0.1 MCG, UNK
     Route: 042
     Dates: start: 20140512
  8. ISOZOL [Concomitant]
     Indication: INDUCTION OF ANAESTHESIA
     Dosage: 150 MG, UNK
     Route: 042
     Dates: start: 20140507
  9. DORMICUM (MIDAZOLAM) [Concomitant]
     Dosage: 5 MG, UNK
     Route: 042
     Dates: start: 20140512
  10. SIGMART [Concomitant]
     Indication: PROPHYLAXIS
     Dosage: 4MG/H, DAILY DOSE UNKNOWN
     Route: 041
     Dates: start: 20140512

REACTIONS (2)
  - Arteriospasm coronary [Recovered/Resolved]
  - Arteriospasm coronary [Recovered/Resolved]
